FAERS Safety Report 14169914 (Version 1)
Quarter: 2017Q4

REPORT INFORMATION
  Report Type: Report from Study
  Country: None (occurrence: US)
  Receive Date: 20171108
  Receipt Date: 20171108
  Transmission Date: 20180321
  Serious: Yes (Hospitalization, Other)
  Sender: FDA-Public Use
  Company Number: US-ABBVIE-17K-163-1837250-00

PATIENT
  Sex: Female

DRUGS (2)
  1. HUMIRA [Suspect]
     Active Substance: ADALIMUMAB
     Indication: RHEUMATOID ARTHRITIS
     Route: 058
     Dates: end: 2016
  2. HUMIRA [Suspect]
     Active Substance: ADALIMUMAB
     Route: 058
     Dates: start: 20170706

REACTIONS (12)
  - Asthenia [Unknown]
  - Arthritis [Unknown]
  - Infection [Unknown]
  - Gingivitis [Unknown]
  - Tooth abscess [Unknown]
  - Arthropathy [Unknown]
  - Osteoporosis [Unknown]
  - Subcutaneous abscess [Unknown]
  - Hernia [Unknown]
  - Ulcer [Unknown]
  - General symptom [Unknown]
  - Shoulder operation [Unknown]

NARRATIVE: CASE EVENT DATE: 2015
